FAERS Safety Report 6987613-8 (Version None)
Quarter: 2010Q3

REPORT INFORMATION
  Report Type: 
  Country: None (occurrence: None)
  Receive Date: 20100916
  Receipt Date: 20100907
  Transmission Date: 20110219
  Serious: Yes (Death)
  Sender: FDA-Public Use
  Company Number: FR-CELGENEUS-056-50794-10090947

PATIENT

DRUGS (1)
  1. VIDAZA [Suspect]
     Route: 058
     Dates: start: 20060101, end: 20090101

REACTIONS (2)
  - HAEMORRHAGE [None]
  - INFECTION [None]
